FAERS Safety Report 26182458 (Version 1)
Quarter: 2025Q4

REPORT INFORMATION
  Report Type: Spontaneous
  Country: US (occurrence: US)
  Receive Date: 20251221
  Receipt Date: 20251221
  Transmission Date: 20260118
  Serious: No
  Sender: AMNEAL
  Company Number: US-AMNEAL PHARMACEUTICALS-2025-AMRX-00059

PATIENT

DRUGS (1)
  1. ITRACONAZOLE [Suspect]
     Active Substance: ITRACONAZOLE
     Dosage: 10MG/ML 150ML
     Route: 048

REACTIONS (3)
  - Product colour issue [Unknown]
  - Product contamination microbial [Unknown]
  - No adverse event [Unknown]
